FAERS Safety Report 6587249-7 (Version None)
Quarter: 2010Q1

REPORT INFORMATION
  Report Type: 
  Country: None (occurrence: None)
  Receive Date: 20100217
  Receipt Date: 20090507
  Transmission Date: 20100710
  Serious: No
  Sender: FDA-Public Use
  Company Number: US-ALLERGAN-0906367US

PATIENT
  Age: 45 Year
  Sex: Female

DRUGS (2)
  1. BOTOX COSMETIC [Suspect]
     Indication: SKIN WRINKLING
     Dosage: UNK, SINGLE
     Route: 030
     Dates: start: 20090423, end: 20090423
  2. BOTOX COSMETIC [Suspect]
     Dosage: 69 UNITS, SINGLE
     Route: 030
     Dates: start: 20090122, end: 20090122

REACTIONS (1)
  - DRUG INEFFECTIVE [None]
